FAERS Safety Report 6173406-0 (Version None)
Quarter: 2009Q2

REPORT INFORMATION
  Report Type: 
  Country: None (occurrence: None)
  Receive Date: 20090430
  Receipt Date: 20090424
  Transmission Date: 20091009
  Serious: Yes (Death)
  Sender: FDA-Public Use
  Company Number: FR-WATSON-2008-05632

PATIENT
  Sex: Male

DRUGS (6)
  1. TRELSTAR LA [Suspect]
     Indication: PROSTATE CANCER
     Dosage: 11.25 MG, UNKNOWN
     Route: 058
     Dates: start: 20080820
  2. CLAMOXYL                           /00249601/ [Suspect]
     Indication: DRUG USE FOR UNKNOWN INDICATION
     Dosage: 6G (2 G, 3 IN 1 D)
     Route: 041
     Dates: start: 20080807, end: 20080820
  3. BACTRIM DS [Suspect]
     Indication: DRUG USE FOR UNKNOWN INDICATION
     Dosage: 3 DF (1DF, 3 TID)
     Route: 048
     Dates: start: 20080807, end: 20080820
  4. CASODEX [Suspect]
     Indication: DRUG USE FOR UNKNOWN INDICATION
     Dosage: 50 MG, DAILY
     Route: 048
     Dates: start: 20080804, end: 20080820
  5. NICARDIPINE HCL [Concomitant]
     Indication: DRUG USE FOR UNKNOWN INDICATION
     Dosage: UNK
     Route: 065
  6. MIOREL [Concomitant]
     Indication: DRUG USE FOR UNKNOWN INDICATION
     Dosage: UNK
     Route: 065

REACTIONS (3)
  - COMA [None]
  - HYPOGLYCAEMIA [None]
  - HYPOTENSION [None]
